FAERS Safety Report 7313662-6 (Version None)
Quarter: 2011Q1

REPORT INFORMATION
  Report Type: 
  Country: None (occurrence: None)
  Receive Date: 20110225
  Receipt Date: 20110223
  Transmission Date: 20110831
  Serious: Yes (Other)
  Sender: FDA-Public Use
  Company Number: US-PFIZER INC-2010173559

PATIENT
  Sex: Male

DRUGS (1)
  1. VIAGRA [Suspect]
     Indication: ERECTILE DYSFUNCTION
     Dosage: 50 MG, UNK
     Dates: start: 20000101

REACTIONS (5)
  - EAR OPERATION [None]
  - EXPIRED DRUG ADMINISTERED [None]
  - DEAFNESS UNILATERAL [None]
  - DRUG INEFFECTIVE [None]
  - SKIN CANCER [None]
